FAERS Safety Report 9283924 (Version 1)
Quarter: 2013Q2

REPORT INFORMATION
  Report Type: Spontaneous
  Country: DE (occurrence: DE)
  Receive Date: 20130510
  Receipt Date: 20130510
  Transmission Date: 20140414
  Serious: Yes (Hospitalization, Other)
  Sender: FDA-Public Use
  Company Number: DE-JNJFOC-20130418062

PATIENT
  Sex: 0

DRUGS (1)
  1. IBUPROFEN [Suspect]
     Indication: PAIN
     Route: 065

REACTIONS (7)
  - Renal failure [Unknown]
  - Blood urine present [Unknown]
  - Anuria [Recovered/Resolved]
  - Oliguria [Recovered/Resolved]
  - Gastrointestinal pain [Unknown]
  - Gastrointestinal haemorrhage [Unknown]
  - Cardiovascular disorder [Unknown]
